FAERS Safety Report 24566831 (Version 1)
Quarter: 2024Q4

REPORT INFORMATION
  Report Type: Spontaneous
  Country: CZ (occurrence: CZ)
  Receive Date: 20241030
  Receipt Date: 20241030
  Transmission Date: 20250114
  Serious: Yes (Other)
  Sender: NOVO NORDISK
  Company Number: None

PATIENT
  Age: 45 Year
  Sex: Female
  Weight: 111 kg

DRUGS (4)
  1. NITROFURANTOIN [Concomitant]
     Active Substance: NITROFURANTOIN
     Indication: Product used for unknown indication
     Dosage: TOOK THE MEDICINE FOR 2 DAYS
  2. CEFUROXIME AXETIL [Concomitant]
     Active Substance: CEFUROXIME AXETIL
     Indication: Product used for unknown indication
     Dosage: UNK
  3. SAXENDA [Suspect]
     Active Substance: LIRAGLUTIDE
     Indication: Product used for unknown indication
     Dosage: 6 MG, QD (1X DAILY IN THE MORNING, INJECTION)
     Route: 058
     Dates: start: 20240615, end: 20241001
  4. SULFAMETHOXAZOLE\TRIMETHOPRIM [Concomitant]
     Active Substance: SULFAMETHOXAZOLE\TRIMETHOPRIM
     Indication: Product used for unknown indication
     Dosage: UNK

REACTIONS (8)
  - Urinary tract inflammation [Not Recovered/Not Resolved]
  - Emotional poverty [Not Recovered/Not Resolved]
  - Suspiciousness [Not Recovered/Not Resolved]
  - Aggression [Not Recovered/Not Resolved]
  - Psychotic disorder [Not Recovered/Not Resolved]
  - Puncture site pain [Unknown]
  - Injection site swelling [Unknown]
  - Product use issue [Unknown]

NARRATIVE: CASE EVENT DATE: 20240615
